FAERS Safety Report 9366627 (Version 1)
Quarter: 2013Q2

REPORT INFORMATION
  Report Type: Spontaneous
  Country: US (occurrence: US)
  Receive Date: 20130625
  Receipt Date: 20130625
  Transmission Date: 20140414
  Serious: Yes (Hospitalization)
  Sender: FDA-Public Use
  Company Number: US-BRISTOL-MYERS SQUIBB COMPANY-18798280

PATIENT
  Age: 64 Year
  Sex: Female

DRUGS (1)
  1. BYDUREON [Suspect]
     Dosage: LOT.73098, EXP:DEC2013

REACTIONS (3)
  - Chest pain [Unknown]
  - Injection site mass [Unknown]
  - Product quality issue [Unknown]
